FAERS Safety Report 8837965 (Version 1)
Quarter: 2012Q4

REPORT INFORMATION
  Report Type: 
  Country: IT (occurrence: IT)
  Receive Date: 20121012
  Receipt Date: 20121012
  Transmission Date: 20130627
  Serious: Yes (Death, Hospitalization)
  Sender: FDA-Public Use
  Company Number: IT-ROCHE-1144578

PATIENT
  Age: 35 Year
  Sex: Male

DRUGS (3)
  1. AVASTIN [Suspect]
     Indication: COLON CANCER
     Route: 041
     Dates: start: 20111121, end: 20120910
  2. XELODA [Concomitant]
     Indication: COLON CANCER
     Route: 048
     Dates: start: 20120917, end: 20120920
  3. LANSOPRAZOLE [Concomitant]
     Route: 048
     Dates: start: 20100921, end: 20120920

REACTIONS (1)
  - Acute abdomen [Fatal]
